FAERS Safety Report 17205008 (Version 1)
Quarter: 2019Q4

REPORT INFORMATION
  Report Type: Report from Study
  Country: None (occurrence: SE)
  Receive Date: 20191227
  Receipt Date: 20191227
  Transmission Date: 20200122
  Serious: Yes (Hospitalization)
  Sender: FDA-Public Use
  Company Number: SE-ABBVIE-18K-150-2276912-00

PATIENT
  Age: 85 Year
  Sex: Female

DRUGS (2)
  1. DUODOPA [Suspect]
     Active Substance: CARBIDOPA\LEVODOPA
     Indication: PARKINSON^S DISEASE
     Route: 050
     Dates: start: 20141127, end: 2014
  2. DUODOPA [Suspect]
     Active Substance: CARBIDOPA\LEVODOPA
     Route: 050
     Dates: start: 20141209

REACTIONS (9)
  - Abdominal pain upper [Unknown]
  - Stoma site pain [Not Recovered/Not Resolved]
  - Stoma site extravasation [Unknown]
  - Staphylococcal infection [Unknown]
  - Hyperkinesia [Recovered/Resolved]
  - Device occlusion [Unknown]
  - Excessive granulation tissue [Not Recovered/Not Resolved]
  - Stoma site discharge [Recovered/Resolved]
  - Back pain [Unknown]

NARRATIVE: CASE EVENT DATE: 201812
